FAERS Safety Report 15142686 (Version 1)
Quarter: 2018Q3

REPORT INFORMATION
  Report Type: Spontaneous
  Country: US (occurrence: US)
  Receive Date: 20180713
  Receipt Date: 20180713
  Transmission Date: 20181010
  Serious: Yes (Hospitalization, Other)
  Sender: FDA-Public Use
  Company Number: US-JNJFOC-20180712492

PATIENT
  Age: 76 Year
  Sex: Female

DRUGS (2)
  1. INVOKANA [Suspect]
     Active Substance: CANAGLIFLOZIN
     Indication: TYPE 2 DIABETES MELLITUS
     Route: 048
     Dates: start: 20150630, end: 20170522
  2. INVOKANA [Suspect]
     Active Substance: CANAGLIFLOZIN
     Indication: TYPE 2 DIABETES MELLITUS
     Route: 048
     Dates: end: 20170707

REACTIONS (4)
  - Limb amputation [Unknown]
  - Acute kidney injury [Unknown]
  - Osteomyelitis [Unknown]
  - Diabetic gangrene [Recovering/Resolving]

NARRATIVE: CASE EVENT DATE: 201601
